FAERS Safety Report 10916212 (Version 1)
Quarter: 2015Q1

REPORT INFORMATION
  Report Type: Spontaneous
  Country: RU (occurrence: RU)
  Receive Date: 20150316
  Receipt Date: 20150316
  Transmission Date: 20150721
  Serious: Yes (Other)
  Sender: FDA-Public Use
  Company Number: RU-BAYER-2015-036197

PATIENT

DRUGS (1)
  1. REGORAFENIB [Suspect]
     Active Substance: REGORAFENIB
     Dosage: 160 MG PER DAY

REACTIONS (7)
  - Hypotonia [None]
  - Leukocytosis [None]
  - Thrombocytosis [None]
  - Laboratory test abnormal [None]
  - Condition aggravated [None]
  - Pyrexia [None]
  - Asthenia [None]
